FAERS Safety Report 4477585-2 (Version None)
Quarter: 2004Q4

REPORT INFORMATION
  Report Type: 
  Country: None (occurrence: None)
  Receive Date: 20041012
  Receipt Date: 20040927
  Transmission Date: 20050328
  Serious: Yes (Death)
  Sender: FDA-Public Use
  Company Number: 2004072341

PATIENT
  Age: 45 Year
  Sex: 0

DRUGS (3)
  1. DIPHENHYDRAMINE HCL [Suspect]
     Dosage: ORAL
     Route: 048
  2. PSEUDOEPHEDRINE HCL [Suspect]
     Dosage: ORAL
     Route: 048
  3. DIPHENYLMETHANE DIISOCYANATE [Suspect]
     Dosage: ORAL
     Route: 048

REACTIONS (1)
  - UNEVALUABLE EVENT [None]
